FAERS Safety Report 15168582 (Version 1)
Quarter: 2018Q3

REPORT INFORMATION
  Report Type: Spontaneous
  Country: US (occurrence: US)
  Receive Date: 20180719
  Receipt Date: 20180719
  Transmission Date: 20181010
  Serious: No
  Sender: FDA-Public Use
  Company Number: US-ASTRAZENECA-2018SE89989

PATIENT
  Sex: Female
  Weight: 62.1 kg

DRUGS (6)
  1. SYMBICORT [Suspect]
     Active Substance: BUDESONIDE\FORMOTEROL FUMARATE DIHYDRATE
     Indication: ASTHMA
     Dosage: 160/4.5 MG, 2 PUFFS, TWICE A DAY
     Route: 055
     Dates: end: 201806
  2. ALBUTEROL. [Concomitant]
     Active Substance: ALBUTEROL
     Indication: ASTHMA
     Route: 065
  3. ALBUTEROL. [Concomitant]
     Active Substance: ALBUTEROL
     Indication: ORGANISING PNEUMONIA
     Route: 065
  4. SYMBICORT [Suspect]
     Active Substance: BUDESONIDE\FORMOTEROL FUMARATE DIHYDRATE
     Indication: ASTHMA
     Dosage: 160/4.5 MG, 2 PUFFS, TWICE A DAY
     Route: 055
  5. SYMBICORT [Suspect]
     Active Substance: BUDESONIDE\FORMOTEROL FUMARATE DIHYDRATE
     Indication: ORGANISING PNEUMONIA
     Dosage: 160/4.5 MG, 2 PUFFS, TWICE A DAY
     Route: 055
     Dates: end: 201806
  6. SYMBICORT [Suspect]
     Active Substance: BUDESONIDE\FORMOTEROL FUMARATE DIHYDRATE
     Indication: ORGANISING PNEUMONIA
     Dosage: 160/4.5 MG, 2 PUFFS, TWICE A DAY
     Route: 055

REACTIONS (6)
  - Loss of consciousness [Unknown]
  - Intentional product misuse [Unknown]
  - Pneumonia [Unknown]
  - Cardiac disorder [Unknown]
  - Incoherent [Unknown]
  - Dyspnoea [Unknown]
